FAERS Safety Report 9565851 (Version 2)
Quarter: 2014Q3

REPORT INFORMATION
  Report Type: Report from Study
  Country: VE (occurrence: VE)
  Receive Date: 20130930
  Receipt Date: 20140923
  Transmission Date: 20150326
  Serious: Yes (Death, Hospitalization)
  Sender: FDA-Public Use
  Company Number: VE-ABBVIE-13P-178-1152659-00

PATIENT
  Age: 52 Year
  Sex: Male

DRUGS (2)
  1. ZEMPLAR [Suspect]
     Active Substance: PARICALCITOL
     Indication: RENAL FAILURE CHRONIC
     Dosage: 1.5 ML
     Route: 042
     Dates: start: 201207, end: 20130826
  2. ZEMPLAR [Suspect]
     Active Substance: PARICALCITOL
     Indication: RENAL FAILURE

REACTIONS (2)
  - Cardiac disorder [Fatal]
  - Endocarditis bacterial [Unknown]

NARRATIVE: CASE EVENT DATE: 20130902
